FAERS Safety Report 20505955 (Version 1)
Quarter: 2022Q1

REPORT INFORMATION
  Report Type: Spontaneous
  Country: US (occurrence: None)
  Receive Date: 20220221
  Receipt Date: 20220221
  Transmission Date: 20220423
  Serious: Yes (Other)
  Sender: FDA-Public Use
  Company Number: None

PATIENT
  Age: 1 Day
  Sex: Male
  Weight: 3.39 kg

DRUGS (2)
  1. LIDOCAINE AND PRILOCAINE [Suspect]
     Active Substance: LIDOCAINE\PRILOCAINE
     Indication: Pain
     Dosage: FREQUENCY : ONCE;?
     Route: 061
     Dates: start: 20220221, end: 20220221
  2. LIDOCAINE AND PRILOCAINE [Suspect]
     Active Substance: LIDOCAINE\PRILOCAINE
     Indication: Circumcision

REACTIONS (2)
  - Application site swelling [None]
  - Application site erythema [None]

NARRATIVE: CASE EVENT DATE: 20220221
